FAERS Safety Report 6105016-5 (Version None)
Quarter: 2009Q1

REPORT INFORMATION
  Report Type: 
  Country: None (occurrence: None)
  Receive Date: 20090306
  Receipt Date: 20090302
  Transmission Date: 20090719
  Serious: Yes (Hospitalization, Other)
  Sender: FDA-Public Use
  Company Number: US-BAYER-200838405NA

PATIENT
  Age: 39 Year
  Sex: Female
  Weight: 62 kg

DRUGS (1)
  1. MIRENA [Suspect]
     Indication: CONTRACEPTION
     Route: 015
     Dates: start: 20080915, end: 20081031

REACTIONS (8)
  - ACUTE RESPIRATORY DISTRESS SYNDROME [None]
  - DEEP VEIN THROMBOSIS POSTOPERATIVE [None]
  - IUCD COMPLICATION [None]
  - PELVIC PAIN [None]
  - PERITONITIS [None]
  - SMALL INTESTINAL PERFORATION [None]
  - SYSTEMIC INFLAMMATORY RESPONSE SYNDROME [None]
  - UTERINE RUPTURE [None]
